FAERS Safety Report 19904018 (Version 2)
Quarter: 2021Q4

REPORT INFORMATION
  Report Type: Report from Study
  Country: GB (occurrence: GB)
  Receive Date: 20211001
  Receipt Date: 20211128
  Transmission Date: 20220303
  Serious: Yes (Hospitalization)
  Sender: FDA-Public Use
  Company Number: GB-ABBVIE-21K-167-4101480-00

PATIENT
  Age: 76 Year
  Sex: Female
  Weight: 56.6 kg

DRUGS (2)
  1. RINVOQ [Suspect]
     Active Substance: UPADACITINIB
     Indication: Rheumatoid arthritis
     Route: 048
     Dates: start: 202106, end: 20210908
  2. RINVOQ [Suspect]
     Active Substance: UPADACITINIB
     Route: 048
     Dates: start: 20210921

REACTIONS (2)
  - COVID-19 [Unknown]
  - Lethargy [Unknown]

NARRATIVE: CASE EVENT DATE: 20210101
